FAERS Safety Report 19637285 (Version 1)
Quarter: 2021Q3

REPORT INFORMATION
  Report Type: Spontaneous
  Country: US (occurrence: US)
  Receive Date: 20210730
  Receipt Date: 20210730
  Transmission Date: 20211014
  Serious: No
  Sender: FDA-Public Use
  Company Number: US-ASTRAZENECA-2021A609738

PATIENT
  Sex: Female

DRUGS (2)
  1. FASLODEX [Suspect]
     Active Substance: FULVESTRANT
     Indication: BREAST CANCER FEMALE
     Dosage: Q 28 DAYS
     Route: 030
  2. IBRANCE [Suspect]
     Active Substance: PALBOCICLIB
     Indication: BREAST CANCER FEMALE
     Dosage: 125MG FOR 21 DAYS, THEN 7 DAYS OFF
     Route: 048
     Dates: start: 20210308

REACTIONS (3)
  - Alopecia [Recovering/Resolving]
  - Blood calcium abnormal [Not Recovered/Not Resolved]
  - Headache [Unknown]
